FAERS Safety Report 9957720 (Version 2)
Quarter: 2014Q1

REPORT INFORMATION
  Report Type: Report from Study
  Country: SE (occurrence: SE)
  Receive Date: 20140304
  Receipt Date: 20140304
  Transmission Date: 20141002
  Serious: Yes (Hospitalization)
  Sender: FDA-Public Use
  Company Number: SE-ROCHE-1011084

PATIENT
  Age: 61 Year
  Sex: Female
  Weight: 78.1 kg

DRUGS (3)
  1. BEVACIZUMAB [Suspect]
     Indication: OVARIAN CANCER
     Dosage: LAST DOSE PRIOR TO SAE:06/OCT/2011
     Route: 042
     Dates: start: 20110713
  2. CARBOPLATIN [Suspect]
     Indication: OVARIAN CANCER
     Dosage: LAST DOSE PRIOR TO SAE:06/OCT/2011
     Route: 042
     Dates: start: 20110713
  3. PACLITAXEL [Suspect]
     Indication: OVARIAN CANCER
     Dosage: LAST DOSE PRIOR TO SAE ON 15/SEP/2011
     Route: 042
     Dates: start: 20110713

REACTIONS (1)
  - Dehydration [Recovered/Resolved]
